FAERS Safety Report 25347459 (Version 1)
Quarter: 2025Q2

REPORT INFORMATION
  Report Type: Report from Study
  Country: US (occurrence: US)
  Receive Date: 20250522
  Receipt Date: 20250522
  Transmission Date: 20250716
  Serious: Yes (Hospitalization, Other)
  Sender: GILEAD
  Company Number: US-GILEAD-2025-0713361

PATIENT
  Age: 78 Year
  Sex: Male
  Weight: 92.1 kg

DRUGS (104)
  1. AXICABTAGENE CILOLEUCEL [Suspect]
     Active Substance: AXICABTAGENE CILOLEUCEL
     Indication: Diffuse large B-cell lymphoma
     Route: 042
     Dates: start: 20250203, end: 20250203
  2. TYLENOL [Concomitant]
     Active Substance: ACETAMINOPHEN
     Indication: Chills
     Route: 048
     Dates: start: 20250510, end: 20250510
  3. TYLENOL [Concomitant]
     Active Substance: ACETAMINOPHEN
     Indication: Pyrexia
     Route: 048
     Dates: start: 20250512, end: 20250512
  4. TYLENOL [Concomitant]
     Active Substance: ACETAMINOPHEN
     Indication: Pain
  5. TYLENOL [Concomitant]
     Active Substance: ACETAMINOPHEN
     Indication: Headache
  6. ZOVIRAX [Concomitant]
     Active Substance: ACYCLOVIR
     Dosage: 400 MG, BID
     Route: 048
     Dates: start: 20250510, end: 20250510
  7. ZOVIRAX [Concomitant]
     Active Substance: ACYCLOVIR
     Dosage: 400 MG, BID
     Route: 048
     Dates: start: 20250511, end: 20250511
  8. ZOVIRAX [Concomitant]
     Active Substance: ACYCLOVIR
     Dosage: 400 MG, BID
     Route: 048
     Dates: start: 20250512, end: 20250512
  9. ZOVIRAX [Concomitant]
     Active Substance: ACYCLOVIR
     Dosage: 400 MG, BID
     Route: 048
     Dates: start: 20250513, end: 20250513
  10. ZOVIRAX [Concomitant]
     Active Substance: ACYCLOVIR
     Dosage: 400 MG, BID
     Route: 048
     Dates: start: 20250514
  11. ZOVIRAX [Concomitant]
     Active Substance: ACYCLOVIR
     Dosage: 400 MG, BID
     Route: 048
     Dates: start: 20250514
  12. ZOVIRAX [Concomitant]
     Active Substance: ACYCLOVIR
     Dosage: 400 MG, BID
     Route: 048
     Dates: start: 20250515
  13. ZOVIRAX [Concomitant]
     Active Substance: ACYCLOVIR
     Dosage: 400 MG, BID
     Route: 048
     Dates: start: 20250515
  14. ACTIVASE [Concomitant]
     Active Substance: ALTEPLASE
     Dates: start: 20250510, end: 20250510
  15. LIPITOR [Concomitant]
     Active Substance: ATORVASTATIN CALCIUM
     Route: 048
     Dates: start: 20250510
  16. LIPITOR [Concomitant]
     Active Substance: ATORVASTATIN CALCIUM
     Route: 048
     Dates: start: 20250511
  17. LIPITOR [Concomitant]
     Active Substance: ATORVASTATIN CALCIUM
     Route: 048
     Dates: start: 20250512
  18. LIPITOR [Concomitant]
     Active Substance: ATORVASTATIN CALCIUM
     Route: 048
     Dates: start: 20250513
  19. LIPITOR [Concomitant]
     Active Substance: ATORVASTATIN CALCIUM
     Route: 048
     Dates: start: 20250514
  20. LIPITOR [Concomitant]
     Active Substance: ATORVASTATIN CALCIUM
     Route: 048
     Dates: start: 20250515
  21. MAXIPIME [Concomitant]
     Active Substance: CEFEPIME HYDROCHLORIDE
     Dosage: 1 G, Q6H
     Route: 042
     Dates: start: 20250510, end: 20250510
  22. MAXIPIME [Concomitant]
     Active Substance: CEFEPIME HYDROCHLORIDE
     Dosage: 1 G, Q6H
     Route: 042
     Dates: start: 20250510, end: 20250510
  23. MAXIPIME [Concomitant]
     Active Substance: CEFEPIME HYDROCHLORIDE
     Dosage: 1 G, Q6H
     Route: 042
     Dates: start: 20250510, end: 20250510
  24. MAXIPIME [Concomitant]
     Active Substance: CEFEPIME HYDROCHLORIDE
     Dosage: 1 G, Q6H
     Route: 042
     Dates: start: 20250510, end: 20250510
  25. MAXIPIME [Concomitant]
     Active Substance: CEFEPIME HYDROCHLORIDE
     Dosage: 1 G, Q6H
     Route: 042
     Dates: start: 20250511, end: 20250511
  26. MAXIPIME [Concomitant]
     Active Substance: CEFEPIME HYDROCHLORIDE
     Dosage: 1 G, Q6H
     Route: 042
     Dates: end: 20250511
  27. MAXIPIME [Concomitant]
     Active Substance: CEFEPIME HYDROCHLORIDE
     Route: 042
     Dates: start: 20250509, end: 20250509
  28. MAXIPIME [Concomitant]
     Active Substance: CEFEPIME HYDROCHLORIDE
     Route: 042
     Dates: start: 20250509, end: 20250509
  29. BENADRYL [Concomitant]
     Active Substance: DIPHENHYDRAMINE HYDROCHLORIDE
     Indication: Flushing
     Route: 048
     Dates: start: 20250510, end: 20250510
  30. BENADRYL [Concomitant]
     Active Substance: DIPHENHYDRAMINE HYDROCHLORIDE
     Indication: Pruritus
     Route: 048
     Dates: start: 20250512, end: 20250512
  31. BENADRYL [Concomitant]
     Active Substance: DIPHENHYDRAMINE HYDROCHLORIDE
     Indication: Pruritus
  32. BENADRYL [Concomitant]
     Active Substance: DIPHENHYDRAMINE HYDROCHLORIDE
     Indication: Urticaria
  33. BENADRYL [Concomitant]
     Active Substance: DIPHENHYDRAMINE HYDROCHLORIDE
     Indication: Rash
  34. BENADRYL [Concomitant]
     Active Substance: DIPHENHYDRAMINE HYDROCHLORIDE
     Indication: Back pain
  35. PEPCID [Concomitant]
     Active Substance: FAMOTIDINE
     Dosage: 20 MG, BID
     Route: 048
     Dates: start: 20250510
  36. PEPCID [Concomitant]
     Active Substance: FAMOTIDINE
     Dosage: 20 MG, BID
     Route: 048
     Dates: start: 20250510
  37. PEPCID [Concomitant]
     Active Substance: FAMOTIDINE
     Dosage: 20 MG, BID
     Route: 048
     Dates: start: 20250511
  38. PEPCID [Concomitant]
     Active Substance: FAMOTIDINE
     Dosage: 20 MG, BID
     Route: 048
     Dates: start: 20250511
  39. PEPCID [Concomitant]
     Active Substance: FAMOTIDINE
     Dosage: 20 MG, BID
     Route: 048
     Dates: start: 20250512
  40. PEPCID [Concomitant]
     Active Substance: FAMOTIDINE
     Dosage: 20 MG, BID
     Route: 048
     Dates: start: 20250512
  41. PEPCID [Concomitant]
     Active Substance: FAMOTIDINE
     Dosage: 20 MG, BID
     Route: 048
     Dates: start: 20250513
  42. PEPCID [Concomitant]
     Active Substance: FAMOTIDINE
     Dosage: 20 MG, BID
     Route: 048
     Dates: start: 20250513
  43. ULORIC [Concomitant]
     Active Substance: FEBUXOSTAT
     Dosage: 80 MG, QD
     Route: 048
     Dates: start: 20250510
  44. ULORIC [Concomitant]
     Active Substance: FEBUXOSTAT
     Dosage: 80 MG, QD
     Route: 048
     Dates: start: 20250511
  45. ULORIC [Concomitant]
     Active Substance: FEBUXOSTAT
     Dosage: 80 MG, QD
     Route: 048
     Dates: start: 20250512
  46. ULORIC [Concomitant]
     Active Substance: FEBUXOSTAT
     Dosage: 80 MG, QD
     Route: 048
     Dates: start: 20250513
  47. ULORIC [Concomitant]
     Active Substance: FEBUXOSTAT
     Dosage: 80 MG, QD
     Route: 048
     Dates: start: 20250514
  48. ULORIC [Concomitant]
     Active Substance: FEBUXOSTAT
     Dosage: 80 MG, QD
     Route: 048
     Dates: start: 20250515, end: 20250515
  49. FOLBIC [Concomitant]
     Active Substance: CYANOCOBALAMIN\FOLIC ACID\PYRIDOXINE
     Dosage: 1 DOSAGE FORM, QD
     Route: 048
     Dates: start: 20250510
  50. FOLBIC [Concomitant]
     Active Substance: CYANOCOBALAMIN\FOLIC ACID\PYRIDOXINE
     Dosage: 1 DOSAGE FORM, QD
     Route: 048
     Dates: start: 20250510
  51. FOLBIC [Concomitant]
     Active Substance: CYANOCOBALAMIN\FOLIC ACID\PYRIDOXINE
     Dosage: 1 DOSAGE FORM, QD
     Route: 048
     Dates: start: 20250510
  52. FOLBIC [Concomitant]
     Active Substance: CYANOCOBALAMIN\FOLIC ACID\PYRIDOXINE
     Dosage: 1 DOSAGE FORM, QD
     Route: 048
     Dates: start: 20250511
  53. FOLBIC [Concomitant]
     Active Substance: CYANOCOBALAMIN\FOLIC ACID\PYRIDOXINE
     Dosage: 1 DOSAGE FORM, QD
     Route: 048
     Dates: start: 20250512
  54. FOLBIC [Concomitant]
     Active Substance: CYANOCOBALAMIN\FOLIC ACID\PYRIDOXINE
     Dosage: 1 DOSAGE FORM, QD
     Route: 048
     Dates: start: 20250513
  55. FOLBIC [Concomitant]
     Active Substance: CYANOCOBALAMIN\FOLIC ACID\PYRIDOXINE
     Dosage: 1 DOSAGE FORM, QD
     Route: 048
     Dates: start: 20250514
  56. FOLBIC [Concomitant]
     Active Substance: CYANOCOBALAMIN\FOLIC ACID\PYRIDOXINE
     Dosage: 1 DOSAGE FORM, QD
     Route: 048
     Dates: start: 20250515
  57. HEPARIN [Concomitant]
     Active Substance: HEPARIN SODIUM
     Dosage: 5000 IU, BID
     Route: 058
     Dates: start: 20250511
  58. HEPARIN [Concomitant]
     Active Substance: HEPARIN SODIUM
     Dosage: 5000 IU, BID
     Route: 058
     Dates: start: 20250512
  59. HEPARIN [Concomitant]
     Active Substance: HEPARIN SODIUM
     Dosage: 5000 IU, BID
     Route: 058
     Dates: start: 20250512
  60. HEPARIN [Concomitant]
     Active Substance: HEPARIN SODIUM
     Dosage: 5000 IU, BID
     Route: 058
     Dates: start: 20250513
  61. HEPARIN [Concomitant]
     Active Substance: HEPARIN SODIUM
     Dosage: 5000 IU, BID
     Route: 058
     Dates: start: 20250513
  62. PRIVIGEN [Concomitant]
     Active Substance: HUMAN IMMUNOGLOBULIN G
     Route: 042
     Dates: start: 20250511
  63. PRIVIGEN [Concomitant]
     Active Substance: HUMAN IMMUNOGLOBULIN G
     Route: 042
     Dates: start: 20250512
  64. SODIUM CHLORIDE [Concomitant]
     Active Substance: SODIUM CHLORIDE
     Route: 042
     Dates: start: 20250512
  65. SODIUM CHLORIDE [Concomitant]
     Active Substance: SODIUM CHLORIDE
     Route: 042
     Dates: start: 20250510
  66. SODIUM CHLORIDE [Concomitant]
     Active Substance: SODIUM CHLORIDE
     Route: 042
     Dates: start: 20250510
  67. PREDNISOLONE [Concomitant]
     Active Substance: PREDNISOLONE
     Dosage: 80 MG, QD
     Route: 048
     Dates: start: 20250510
  68. PREDNISOLONE [Concomitant]
     Active Substance: PREDNISOLONE
     Dosage: 80 MG, QD
     Route: 048
     Dates: start: 20250511
  69. PREDNISOLONE [Concomitant]
     Active Substance: PREDNISOLONE
     Dosage: 80 MG, QD
     Route: 048
     Dates: start: 20250512
  70. PREDNISOLONE [Concomitant]
     Active Substance: PREDNISOLONE
     Dosage: 80 MG, QD
     Route: 048
     Dates: start: 20250513
  71. PREDNISOLONE [Concomitant]
     Active Substance: PREDNISOLONE
     Dosage: 80 MG, QD
     Route: 048
     Dates: start: 20250509
  72. PREDNISOLONE [Concomitant]
     Active Substance: PREDNISOLONE
     Dosage: 80 MG, QD
     Route: 048
     Dates: start: 20250514
  73. PREDNISOLONE [Concomitant]
     Active Substance: PREDNISOLONE
     Dosage: 80 MG, QD
     Route: 048
     Dates: start: 20250515
  74. TRUXIMA [Concomitant]
     Active Substance: RITUXIMAB-ABBS
     Route: 042
     Dates: start: 20250510
  75. TRUXIMA [Concomitant]
     Active Substance: RITUXIMAB-ABBS
     Route: 042
     Dates: start: 20250510, end: 20250510
  76. TRUXIMA [Concomitant]
     Active Substance: RITUXIMAB-ABBS
     Route: 042
     Dates: start: 20250510
  77. TRUXIMA [Concomitant]
     Active Substance: RITUXIMAB-ABBS
     Route: 042
     Dates: start: 20250510, end: 20250510
  78. TRUXIMA [Concomitant]
     Active Substance: RITUXIMAB-ABBS
     Route: 042
     Dates: start: 20250510, end: 20250510
  79. TRUXIMA [Concomitant]
     Active Substance: RITUXIMAB-ABBS
     Route: 042
     Dates: end: 20250510
  80. ZOLOFT [Concomitant]
     Active Substance: SERTRALINE HYDROCHLORIDE
     Dosage: 150 MG, QD
     Route: 048
     Dates: start: 20250510
  81. ZOLOFT [Concomitant]
     Active Substance: SERTRALINE HYDROCHLORIDE
     Dosage: 150 MG, QD
     Route: 048
     Dates: start: 20250511
  82. ZOLOFT [Concomitant]
     Active Substance: SERTRALINE HYDROCHLORIDE
     Dosage: 150 MG, QD
     Route: 048
     Dates: start: 20250512
  83. ZOLOFT [Concomitant]
     Active Substance: SERTRALINE HYDROCHLORIDE
     Dosage: 150 MG, QD
     Route: 048
     Dates: start: 20250513
  84. ZOLOFT [Concomitant]
     Active Substance: SERTRALINE HYDROCHLORIDE
     Dosage: 150 MG, QD
     Route: 048
     Dates: start: 20250514
  85. ZOLOFT [Concomitant]
     Active Substance: SERTRALINE HYDROCHLORIDE
     Dosage: 150 MG, QD
     Route: 048
     Dates: start: 20250515
  86. VANCOCIN [Concomitant]
     Active Substance: VANCOMYCIN HYDROCHLORIDE
     Dosage: 1500 MG, BID
     Route: 042
     Dates: start: 20250510
  87. VANCOCIN [Concomitant]
     Active Substance: VANCOMYCIN HYDROCHLORIDE
     Dosage: 1500 MG, BID
     Route: 042
     Dates: start: 20250510
  88. VANCOCIN [Concomitant]
     Active Substance: VANCOMYCIN HYDROCHLORIDE
     Dosage: 1500 MG, BID
     Route: 042
     Dates: start: 20250510
  89. VANCOCIN [Concomitant]
     Active Substance: VANCOMYCIN HYDROCHLORIDE
     Dosage: 1500 MG, BID
     Route: 042
     Dates: start: 20250511
  90. VANCOCIN [Concomitant]
     Active Substance: VANCOMYCIN HYDROCHLORIDE
     Dosage: 1500 MG, BID
     Route: 042
     Dates: start: 20250511
  91. VANCOCIN [Concomitant]
     Active Substance: VANCOMYCIN HYDROCHLORIDE
     Dosage: 1500 MG, BID
     Route: 042
     Dates: start: 20250509
  92. VANCOCIN [Concomitant]
     Active Substance: VANCOMYCIN HYDROCHLORIDE
     Dosage: 1500 MG, BID
     Route: 042
     Dates: start: 20250509
  93. ALBUTEROL SULFATE [Concomitant]
     Active Substance: ALBUTEROL SULFATE
     Indication: Wheezing
     Route: 055
     Dates: start: 20250510
  94. ALBUTEROL SULFATE [Concomitant]
     Active Substance: ALBUTEROL SULFATE
     Indication: Dyspnoea
     Route: 055
     Dates: start: 20250510
  95. XANAX [Concomitant]
     Active Substance: ALPRAZOLAM
     Dosage: 0.54 MG, TID
     Route: 048
     Dates: start: 20250510
  96. XANAX [Concomitant]
     Active Substance: ALPRAZOLAM
     Dosage: 0.54 MG, TID
     Route: 048
     Dates: start: 20250510
  97. XANAX [Concomitant]
     Active Substance: ALPRAZOLAM
     Dosage: 0.54 MG, TID
     Route: 048
     Dates: start: 20250513
  98. XANAX [Concomitant]
     Active Substance: ALPRAZOLAM
     Dosage: 0.54 MG, TID
     Route: 048
     Dates: start: 20250514
  99. EPINEPHRINE [Concomitant]
     Active Substance: EPINEPHRINE
     Indication: Anaphylactic reaction
     Route: 030
     Dates: start: 20250511
  100. MIRALAX [Concomitant]
     Active Substance: POLYETHYLENE GLYCOL 3350
     Route: 048
     Dates: start: 20250510, end: 20250515
  101. SENOKOT [Concomitant]
     Active Substance: SENNOSIDES
     Indication: Constipation
     Route: 048
  102. OMNIPAQUE [Concomitant]
     Active Substance: IOHEXOL
     Route: 042
     Dates: start: 20250514, end: 20250514
  103. DEMEROL [Concomitant]
     Active Substance: MEPERIDINE HYDROCHLORIDE
     Indication: Chills
  104. SOLU-MEDROL [Concomitant]
     Active Substance: METHYLPREDNISOLONE SODIUM SUCCINATE
     Route: 042
     Dates: start: 20250510, end: 20250515

REACTIONS (1)
  - Autoimmune haemolytic anaemia [Recovered/Resolved]

NARRATIVE: CASE EVENT DATE: 20250509
